FAERS Safety Report 10882075 (Version 1)
Quarter: 2015Q1

REPORT INFORMATION
  Report Type: Spontaneous
  Country: US (occurrence: US)
  Receive Date: 20150303
  Receipt Date: 20150303
  Transmission Date: 20150721
  Serious: No
  Sender: FDA-Public Use
  Company Number: US-009507513-1502USA006301

PATIENT
  Sex: Female

DRUGS (1)
  1. NEXPLANON [Suspect]
     Active Substance: ETONOGESTREL
     Indication: CONTRACEPTION
     Dosage: 68 MG/ONCE EVERY 3 YEARS
     Route: 059

REACTIONS (4)
  - Feeling abnormal [Unknown]
  - Device breakage [Unknown]
  - Abdominal distension [Unknown]
  - Mood swings [Unknown]

NARRATIVE: CASE EVENT DATE: 2015
